FAERS Safety Report 8907755 (Version 1)
Quarter: 2012Q4

REPORT INFORMATION
  Report Type: 
  Country: US (occurrence: US)
  Receive Date: 20121113
  Receipt Date: 20121113
  Transmission Date: 20130627
  Serious: Yes (Other)
  Sender: FDA-Public Use
  Company Number: CHPA2012US023162

PATIENT
  Age: 83 Year
  Sex: Female

DRUGS (2)
  1. MYOFLEX ANALGESIC CREME [Suspect]
     Indication: ARTHRALGIA
     Dosage: Unk, PRN
     Route: 061
  2. MYOFLEX ANALGESIC CREME [Suspect]
     Dosage: Unk, PRN
     Route: 061
     Dates: start: 1999

REACTIONS (4)
  - Drug dependence [Not Recovered/Not Resolved]
  - Viral infection [Recovered/Resolved]
  - Back pain [Not Recovered/Not Resolved]
  - Expired drug administered [Unknown]
